FAERS Safety Report 14701344 (Version 8)
Quarter: 2019Q2

REPORT INFORMATION
  Report Type: Spontaneous
  Country: US (occurrence: US)
  Receive Date: 20180330
  Receipt Date: 20190521
  Transmission Date: 20190711
  Serious: Yes (Hospitalization)
  Sender: FDA-Public Use
  Company Number: US-ACTELION-A-NJ2018-168612

PATIENT
  Sex: Female
  Weight: 72.56 kg

DRUGS (4)
  1. VELETRI [Suspect]
     Active Substance: EPOPROSTENOL
     Indication: PULMONARY HYPERTENSION
     Dosage: 17.42 NG/KG, PER MIN
     Route: 042
  2. VELETRI [Suspect]
     Active Substance: EPOPROSTENOL
     Dosage: 17.42 NG/KG, PER MIN
     Route: 042
  3. ADCIRCA [Concomitant]
     Active Substance: TADALAFIL
  4. LETAIRIS [Concomitant]
     Active Substance: AMBRISENTAN

REACTIONS (11)
  - Fluid retention [Unknown]
  - Pulmonary arterial hypertension [Unknown]
  - Pleural effusion [Unknown]
  - Aspiration pleural cavity [Unknown]
  - Oedema [Unknown]
  - Cardiac ablation [Unknown]
  - Chest pain [Unknown]
  - Dyspnoea [Unknown]
  - Ascites [Unknown]
  - Paracentesis [Unknown]
  - Fluid overload [Unknown]
